FAERS Safety Report 7075125-5 (Version None)
Quarter: 2010Q4

REPORT INFORMATION
  Report Type: 
  Country: None (occurrence: None)
  Receive Date: 20101029
  Receipt Date: 20100507
  Transmission Date: 20110411
  Serious: No
  Sender: FDA-Public Use
  Company Number: US-WYE-H15137310

PATIENT
  Sex: Female

DRUGS (2)
  1. ALAVERT [Suspect]
  2. BUPRENORPHINE HCL AND NALOXONE HCL [Suspect]

REACTIONS (2)
  - DRUG SCREEN FALSE POSITIVE [None]
  - URINE AMPHETAMINE POSITIVE [None]
